FAERS Safety Report 5770806-5 (Version None)
Quarter: 2008Q2

REPORT INFORMATION
  Report Type: 
  Country: None (occurrence: None)
  Receive Date: 20080613
  Receipt Date: 20080509
  Transmission Date: 20081010
  Serious: No
  Sender: FDA-Public Use
  Company Number: US-ABBOTT-08P-163-0451692-00

PATIENT
  Sex: Female
  Weight: 122.72 kg

DRUGS (5)
  1. HUMIRA [Suspect]
     Indication: ANKYLOSING SPONDYLITIS
     Route: 058
     Dates: start: 20080502
  2. PREDNISONE TAB [Concomitant]
     Indication: RASH
     Route: 048
     Dates: start: 20080426
  3. FLUOXETINE HYDROCHLORIDE [Concomitant]
     Indication: ANXIETY
     Route: 048
  4. FLUOXETINE HYDROCHLORIDE [Concomitant]
     Indication: OBSESSIVE-COMPULSIVE DISORDER
  5. ACETAMINOPHEN [Concomitant]
     Indication: PAIN

REACTIONS (5)
  - BLOOD PRESSURE INCREASED [None]
  - CHEST PAIN [None]
  - HEADACHE [None]
  - HYPOAESTHESIA [None]
  - VISION BLURRED [None]
